FAERS Safety Report 4539864-X (Version None)
Quarter: 2004Q4

REPORT INFORMATION
  Report Type: 
  Country: None (occurrence: None)
  Receive Date: 20041222
  Receipt Date: 20041209
  Transmission Date: 20050328
  Serious: Yes (Hospitalization)
  Sender: FDA-Public Use
  Company Number: A03200404167

PATIENT
  Sex: Male

DRUGS (1)
  1. ELOXATIN [Suspect]
     Indication: CARCINOMA
     Dosage: INTRAVENOUS NOS
     Route: 042

REACTIONS (3)
  - CONVULSION [None]
  - HYDROCEPHALUS [None]
  - MENTAL STATUS CHANGES [None]
